FAERS Safety Report 5580097-6 (Version None)
Quarter: 2007Q4

REPORT INFORMATION
  Report Type: 
  Country: None (occurrence: None)
  Receive Date: 20071227
  Receipt Date: 20071227
  Transmission Date: 20080405
  Serious: Yes (Death, Life-Threatening, Hospitalization)
  Sender: FDA-Public Use
  Company Number: None

PATIENT
  Age: 81 Year
  Sex: Female

DRUGS (5)
  1. WARFARIN SODIUM [Suspect]
     Indication: ATRIAL FIBRILLATION
     Dosage: 2.5 MG  DAILY  PO
     Route: 048
  2. ASPIRIN [Suspect]
     Indication: CEREBROVASCULAR ACCIDENT
     Dosage: PO
     Route: 048
  3. CIPROFLOXACIN [Concomitant]
  4. LEVOTHYROXINE SODIUM [Concomitant]
  5. METOPROLOL [Concomitant]

REACTIONS (4)
  - CEREBROVASCULAR ACCIDENT [None]
  - COAGULOPATHY [None]
  - HAEMORRHAGIC TRANSFORMATION STROKE [None]
  - LOSS OF CONSCIOUSNESS [None]
